FAERS Safety Report 11430164 (Version 1)
Quarter: 2015Q3

REPORT INFORMATION
  Report Type: Spontaneous
  Country: US (occurrence: US)
  Receive Date: 20150828
  Receipt Date: 20150828
  Transmission Date: 20151125
  Serious: No
  Sender: FDA-Public Use
  Company Number: US-ROCHE-1187122

PATIENT
  Sex: Female
  Weight: 124.4 kg

DRUGS (1)
  1. PEGASYS [Suspect]
     Active Substance: PEGINTERFERON ALFA-2A
     Indication: PRODUCT USED FOR UNKNOWN INDICATION
     Dosage: DOSE: 180 MCG/0.5 ML
     Route: 058
     Dates: start: 20130121

REACTIONS (2)
  - Drug administration error [Unknown]
  - Accidental exposure to product [Unknown]
